FAERS Safety Report 23549256 (Version 1)
Quarter: 2024Q1

REPORT INFORMATION
  Report Type: Spontaneous
  Country: US (occurrence: US)
  Receive Date: 20240221
  Receipt Date: 20240221
  Transmission Date: 20240410
  Serious: No
  Sender: FDA-Public Use
  Company Number: US-PFIZER INC-202400043295

PATIENT
  Age: 41 Year
  Sex: Female

DRUGS (1)
  1. IBRANCE [Suspect]
     Active Substance: PALBOCICLIB
     Dosage: 125 MG, CYCLIC (ONE 125MG TABLET ORALLY DAILY, 3 WEEKS ON, ONE WEEK OFF)
     Route: 048
     Dates: start: 20230817

REACTIONS (1)
  - Hot flush [Not Recovered/Not Resolved]
